FAERS Safety Report 8862430 (Version 10)
Quarter: 2014Q1

REPORT INFORMATION
  Report Type: Spontaneous
  Country: US (occurrence: US)
  Receive Date: 20121026
  Receipt Date: 20140213
  Transmission Date: 20141002
  Serious: Yes (Death, Hospitalization, Other)
  Sender: FDA-Public Use
  Company Number: PHEH2005US014210

PATIENT
  Age: 63 Year
  Sex: Female
  Weight: 77.1 kg

DRUGS (7)
  1. AREDIA [Suspect]
     Dosage: 90 MG, QMO
     Route: 042
     Dates: start: 19980825, end: 20020423
  2. ZOMETA [Suspect]
     Dosage: 4 MG,
     Route: 042
     Dates: start: 20020528, end: 20050405
  3. TAXOL [Concomitant]
  4. ARIMIDEX [Concomitant]
  5. FEMARA [Concomitant]
     Dosage: 2.5 MG, QD
  6. CHEMOTHERAPEUTICS,OTHER [Concomitant]
     Dates: start: 1998, end: 2002
  7. SYNTHROID [Concomitant]

REACTIONS (116)
  - Death [Fatal]
  - Osteonecrosis of jaw [Unknown]
  - Fistula [Recovering/Resolving]
  - Osteomyelitis chronic [Recovering/Resolving]
  - Oral pain [Unknown]
  - Oral discharge [Unknown]
  - Tooth abscess [Unknown]
  - Toothache [Unknown]
  - Tooth disorder [Unknown]
  - Tooth infection [Unknown]
  - Pain in jaw [Unknown]
  - Bone disorder [Unknown]
  - Gingival disorder [Unknown]
  - Wound dehiscence [Unknown]
  - Primary sequestrum [Unknown]
  - Eye abscess [Unknown]
  - Fatigue [Unknown]
  - Dysphagia [Recovering/Resolving]
  - Mastication disorder [Recovering/Resolving]
  - Speech disorder [Recovering/Resolving]
  - Gram stain positive [Unknown]
  - Culture tissue specimen positive [Unknown]
  - Pneumonia pneumococcal [Unknown]
  - Cough [Unknown]
  - Dyspnoea [Unknown]
  - Pyrexia [Unknown]
  - Haemoptysis [Unknown]
  - Sputum purulent [Unknown]
  - Chest pain [Unknown]
  - Pleural effusion [Unknown]
  - Lung infiltration [Unknown]
  - Labyrinthitis [Recovering/Resolving]
  - Vertigo [Unknown]
  - Nausea [Unknown]
  - Vomiting [Recovering/Resolving]
  - Sinus disorder [Recovered/Resolved]
  - Ankle fracture [Recovering/Resolving]
  - Fall [Unknown]
  - Dental caries [Unknown]
  - Visual impairment [Unknown]
  - Atelectasis [Unknown]
  - Periodontitis [Unknown]
  - Loose tooth [Unknown]
  - Alopecia [Unknown]
  - Nystagmus [Unknown]
  - Alveolar osteitis [Unknown]
  - Cataract [Unknown]
  - Neuropathy peripheral [Unknown]
  - Metastases to liver [Unknown]
  - Haemorrhoids [Unknown]
  - Depression [Unknown]
  - Suicide attempt [Unknown]
  - Oesophagitis [Unknown]
  - Pulmonary granuloma [Unknown]
  - Metastases to adrenals [Unknown]
  - Pleural fibrosis [Unknown]
  - Acquired diaphragmatic eventration [Unknown]
  - Haematemesis [Unknown]
  - Foot fracture [Recovering/Resolving]
  - Tricuspid valve incompetence [Unknown]
  - Mitral valve incompetence [Unknown]
  - Pulmonary arterial pressure abnormal [Unknown]
  - Diplopia [Unknown]
  - Vision blurred [Unknown]
  - Rhinorrhoea [Unknown]
  - Upper-airway cough syndrome [Unknown]
  - Myalgia [Unknown]
  - Arthralgia [Unknown]
  - Cellulitis orbital [Unknown]
  - Proteinuria [Unknown]
  - Weight decreased [Unknown]
  - Pulmonary bulla [Unknown]
  - Uterine enlargement [Unknown]
  - Anxiety [Unknown]
  - Coronary artery disease [Unknown]
  - Cardiac failure congestive [Unknown]
  - Central nervous system lesion [Unknown]
  - Skin lesion [Unknown]
  - Purulent discharge [Unknown]
  - Palatal disorder [Unknown]
  - Bone lesion [Unknown]
  - Metastases to bone [Unknown]
  - Upper respiratory tract infection [Unknown]
  - Cerebral atrophy [Unknown]
  - Cystocele [Unknown]
  - Hypoaesthesia oral [Unknown]
  - Paraesthesia oral [Unknown]
  - Paraesthesia [Unknown]
  - Hypoaesthesia [Unknown]
  - Erythema [Unknown]
  - Muscular weakness [Unknown]
  - Pain in extremity [Unknown]
  - Polyp [Unknown]
  - Cachexia [Unknown]
  - Loss of consciousness [Unknown]
  - Osteoarthritis [Unknown]
  - Haemorrhage [Unknown]
  - Metastases to meninges [Unknown]
  - Exophthalmos [Unknown]
  - Oropharyngeal pain [Unknown]
  - Corneal scar [Unknown]
  - Dellen [Unknown]
  - Retinal oedema [Unknown]
  - Borderline glaucoma [Unknown]
  - Corneal abrasion [Unknown]
  - Strabismus [Unknown]
  - VIth nerve paralysis [Unknown]
  - IVth nerve paralysis [Unknown]
  - Sjogren^s syndrome [Unknown]
  - Lip pain [Unknown]
  - Facial pain [Unknown]
  - Glossodynia [Unknown]
  - Retinal detachment [Unknown]
  - Maculopathy [Unknown]
  - Headache [Unknown]
  - Coordination abnormal [Unknown]
